FAERS Safety Report 10576433 (Version 1)
Quarter: 2014Q4

REPORT INFORMATION
  Report Type: Spontaneous
  Country: US (occurrence: None)
  Receive Date: 20141110
  Receipt Date: 20141110
  Transmission Date: 20150529
  Serious: Yes (Hospitalization, Other)
  Sender: FDA-Public Use
  Company Number: None

PATIENT
  Age: 47 Year
  Sex: Female

DRUGS (1)
  1. MIRENA [Suspect]
     Active Substance: LEVONORGESTREL

REACTIONS (3)
  - Ovarian cyst [None]
  - Uterine leiomyoma [None]
  - Carbohydrate antigen 125 increased [None]

NARRATIVE: CASE EVENT DATE: 20141003
